FAERS Safety Report 5825409-0 (Version None)
Quarter: 2008Q3

REPORT INFORMATION
  Report Type: 
  Country: None (occurrence: None)
  Receive Date: 20080725
  Receipt Date: 20080725
  Transmission Date: 20090109
  Serious: Yes (Other)
  Sender: FDA-Public Use
  Company Number: None

PATIENT
  Sex: Female
  Weight: 78.9259 kg

DRUGS (2)
  1. MAXIPIME [Suspect]
     Indication: POST PROCEDURAL INFECTION
     Dosage: 2 GRAMS EVERY 12 HOURS IV
     Route: 042
     Dates: start: 20080529, end: 20080626
  2. MAXIPIME [Suspect]
     Indication: PSEUDOMONAS INFECTION
     Dosage: 2 GRAMS EVERY 12 HOURS IV
     Route: 042
     Dates: start: 20080529, end: 20080626

REACTIONS (2)
  - NEUTROPENIA [None]
  - WHITE BLOOD CELL COUNT DECREASED [None]
